FAERS Safety Report 8924714 (Version 1)
Quarter: 2012Q4

REPORT INFORMATION
  Report Type: Report from Study
  Country: JP (occurrence: JP)
  Receive Date: 20121126
  Receipt Date: 20121126
  Transmission Date: 20130627
  Serious: Yes (Other)
  Sender: FDA-Public Use
  Company Number: JP-UCBSA-071527

PATIENT
  Age: 34 None
  Sex: Female

DRUGS (1)
  1. XYZAL [Suspect]
     Indication: RHINITIS SEASONAL
     Route: 048
     Dates: start: 20110331, end: 20110420

REACTIONS (2)
  - Abortion [Unknown]
  - Pregnancy [Recovered/Resolved]
